FAERS Safety Report 7981740-4 (Version None)
Quarter: 2011Q4

REPORT INFORMATION
  Report Type: 
  Country: None (occurrence: None)
  Receive Date: 20111215
  Receipt Date: 20111201
  Transmission Date: 20120403
  Serious: Yes (Other)
  Sender: FDA-Public Use
  Company Number: US-SANOFI-AVENTIS-2011SA079134

PATIENT
  Sex: Female

DRUGS (1)
  1. PLAVIX [Suspect]

REACTIONS (3)
  - NEOPLASM MALIGNANT [None]
  - PNEUMONIA [None]
  - MALAISE [None]
